FAERS Safety Report 20532788 (Version 1)
Quarter: 2022Q1

REPORT INFORMATION
  Report Type: Spontaneous
  Country: AT (occurrence: AT)
  Receive Date: 20220301
  Receipt Date: 20220301
  Transmission Date: 20220423
  Serious: Yes (Other)
  Sender: FDA-Public Use
  Company Number: None

PATIENT
  Age: 48 Year
  Sex: Female

DRUGS (1)
  1. NAPROXEN [Suspect]
     Active Substance: NAPROXEN
     Indication: Pain
     Dosage: ACCORDING TO TECHNICAL INFORMATION AND RECOMMENDATIONS FOR USE, NAPROBENE 500 MG FILM-COATED TABLETS
     Route: 065
     Dates: start: 20211112, end: 20211112

REACTIONS (2)
  - Anaphylactic reaction [Unknown]
  - Type I hypersensitivity [Unknown]

NARRATIVE: CASE EVENT DATE: 20211112
